FAERS Safety Report 5112812-X (Version None)
Quarter: 2006Q3

REPORT INFORMATION
  Report Type: 
  Country: None (occurrence: None)
  Receive Date: 20060922
  Receipt Date: 20060908
  Transmission Date: 20061208
  Serious: Yes (Life-Threatening)
  Sender: FDA-Public Use
  Company Number: FR-BOEHRINGER INGELHEIM PHARMACEUTICALS, INC.-2006-FF-00808PF

PATIENT
  Sex: Male
  Weight: 85 kg

DRUGS (6)
  1. SPIRIVA [Suspect]
     Indication: BRONCHITIS CHRONIC
     Route: 055
     Dates: start: 20060801, end: 20060801
  2. PLAVIX [Concomitant]
     Indication: ARTERITIS
     Route: 048
  3. FORADIL [Concomitant]
     Route: 048
  4. OMEPRAZOLE [Concomitant]
     Route: 048
  5. AMLOR [Concomitant]
     Indication: HYPERTENSION
  6. RAMIPRIL [Concomitant]
     Indication: CARDIAC DISORDER

REACTIONS (2)
  - PHARYNGOLARYNGEAL DISCOMFORT [None]
  - SUFFOCATION FEELING [None]
